FAERS Safety Report 10003702 (Version 1)
Quarter: 2014Q1

REPORT INFORMATION
  Report Type: Spontaneous
  Country: US (occurrence: US)
  Receive Date: 20140312
  Receipt Date: 20140312
  Transmission Date: 20141002
  Serious: No
  Sender: FDA-Public Use
  Company Number: US-ABBVIE-13P-163-1090422-00

PATIENT
  Age: 79 Year
  Sex: Male
  Weight: 81.72 kg

DRUGS (4)
  1. DEPAKOTE [Suspect]
     Indication: CONVULSION
     Dates: start: 201204, end: 201205
  2. DEPAKOTE [Suspect]
     Dates: start: 201204, end: 201205
  3. DEPAKOTE [Suspect]
     Dates: start: 201205
  4. NORVASC [Concomitant]
     Indication: HYPERTENSION

REACTIONS (2)
  - Somnolence [Not Recovered/Not Resolved]
  - Tremor [Not Recovered/Not Resolved]
